FAERS Safety Report 22003203 (Version 1)
Quarter: 2023Q1

REPORT INFORMATION
  Report Type: Spontaneous
  Country: US (occurrence: US)
  Receive Date: 20230217
  Receipt Date: 20230217
  Transmission Date: 20230417
  Serious: Yes (Life-Threatening, Other)
  Sender: FDA-Public Use
  Company Number: US-SUN PHARMACEUTICAL INDUSTRIES LTD-2023R1-379007

PATIENT
  Age: 76 Year
  Sex: Male

DRUGS (1)
  1. SULFAMETHOXAZOLE\TRIMETHOPRIM [Suspect]
     Active Substance: SULFAMETHOXAZOLE\TRIMETHOPRIM
     Indication: Nephropathy
     Dosage: UNK
     Route: 065

REACTIONS (4)
  - Skin ulcer [Unknown]
  - Myocardial infarction [Recovering/Resolving]
  - Renal failure [Recovered/Resolved]
  - Atrial fibrillation [Recovered/Resolved]
